FAERS Safety Report 4751738-8 (Version None)
Quarter: 2005Q3

REPORT INFORMATION
  Report Type: 
  Country: None (occurrence: None)
  Receive Date: 20050822
  Receipt Date: 20050822
  Transmission Date: 20060218
  Serious: Yes (Hospitalization)
  Sender: FDA-Public Use
  Company Number: None

PATIENT
  Age: 61 Year
  Sex: Female

DRUGS (1)
  1. TOPAMAX [Suspect]
     Indication: MIGRAINE PROPHYLAXIS
     Dosage: 100 MG   BID   PO
     Route: 048
     Dates: start: 20050619, end: 20050622

REACTIONS (5)
  - APHASIA [None]
  - EYE PAIN [None]
  - EYE ROLLING [None]
  - PARALYSIS [None]
  - TREMOR [None]
